FAERS Safety Report 13273208 (Version 3)
Quarter: 2017Q2

REPORT INFORMATION
  Report Type: Spontaneous
  Country: JP (occurrence: JP)
  Receive Date: 20170227
  Receipt Date: 20170522
  Transmission Date: 20170830
  Serious: Yes (Other)
  Sender: FDA-Public Use
  Company Number: JP-PFIZER INC-2017079151

PATIENT
  Age: 40 Year
  Sex: Male

DRUGS (12)
  1. ALPRAZOLAM. [Concomitant]
     Active Substance: ALPRAZOLAM
     Indication: ANXIETY
     Dosage: 0.4 MG, 3X/DAY
     Route: 048
     Dates: start: 20161107
  2. PHENOBARBITAL. [Concomitant]
     Active Substance: PHENOBARBITAL
     Indication: INSOMNIA
     Dosage: 30 MG, 1X/DAY
     Route: 048
     Dates: start: 20161128
  3. TRYPTANOL [Concomitant]
     Active Substance: AMITRIPTYLINE
     Indication: DEPRESSION
     Dosage: 30 MG, 1X/DAY
     Route: 048
  4. EFFEXOR [Suspect]
     Active Substance: VENLAFAXINE HYDROCHLORIDE
     Dosage: 75 MG, 1X/DAY
     Route: 048
     Dates: start: 20170113, end: 20170201
  5. CYMBALTA [Concomitant]
     Active Substance: DULOXETINE HYDROCHLORIDE
     Dosage: 20 MG, 1X/DAY
     Dates: start: 20170105, end: 20170112
  6. EFFEXOR [Suspect]
     Active Substance: VENLAFAXINE HYDROCHLORIDE
     Indication: DEPRESSION
     Dosage: 37.5 MG, 1X/DAY
     Route: 048
     Dates: start: 20170105, end: 20170112
  7. CYMBALTA [Concomitant]
     Active Substance: DULOXETINE HYDROCHLORIDE
     Indication: DEPRESSION
     Dosage: 60 MG, 1X/DAY
     Dates: start: 20161219, end: 20170104
  8. HALCION [Concomitant]
     Active Substance: TRIAZOLAM
     Indication: INSOMNIA
     Dosage: 0.5 MG, 1X/DAY
     Route: 048
     Dates: start: 20161221
  9. EFFEXOR [Suspect]
     Active Substance: VENLAFAXINE HYDROCHLORIDE
     Dosage: 75 MG, 1X/DAY
     Route: 048
     Dates: start: 20170211
  10. ABILIFY [Concomitant]
     Active Substance: ARIPIPRAZOLE
     Indication: DEPRESSION
     Dosage: 3 MG, 1X/DAY
     Route: 048
     Dates: start: 20170105
  11. ALPRAZOLAM. [Concomitant]
     Active Substance: ALPRAZOLAM
     Indication: DEPRESSION
  12. EFFEXOR [Suspect]
     Active Substance: VENLAFAXINE HYDROCHLORIDE
     Dosage: 150 MG, 1X/DAY
     Route: 048
     Dates: start: 20170202, end: 20170210

REACTIONS (8)
  - Hyperhidrosis [Recovered/Resolved]
  - Tremor [Recovered/Resolved]
  - Memory impairment [Recovered/Resolved]
  - Dysarthria [Recovered/Resolved]
  - Flushing [Recovered/Resolved]
  - Feeling abnormal [Recovered/Resolved]
  - Disinhibition [Recovered/Resolved]
  - Dysphemia [Recovered/Resolved]

NARRATIVE: CASE EVENT DATE: 20170206
